FAERS Safety Report 7990278-X (Version None)
Quarter: 2011Q4

REPORT INFORMATION
  Report Type: 
  Country: None (occurrence: None)
  Receive Date: 20111219
  Receipt Date: 20101229
  Transmission Date: 20120403
  Serious: No
  Sender: FDA-Public Use
  Company Number: US-ASTRAZENECA-2010SE61276

PATIENT
  Age: 65 Year
  Sex: Female
  Weight: 55.8 kg

DRUGS (5)
  1. CRESTOR [Suspect]
     Indication: HYPERCHOLESTEROLAEMIA
     Route: 048
     Dates: start: 20101101
  2. CASCARA TAB [Concomitant]
  3. LEVOXYL [Concomitant]
  4. HYDROCHLOROTHIAZIDE [Concomitant]
  5. METAMUCIL-2 [Concomitant]

REACTIONS (2)
  - DIARRHOEA [None]
  - WEIGHT DECREASED [None]
